FAERS Safety Report 9293359 (Version 1)
Quarter: 2013Q2

REPORT INFORMATION
  Report Type: Spontaneous
  Country: US (occurrence: US)
  Receive Date: 20130516
  Receipt Date: 20130516
  Transmission Date: 20140414
  Serious: Yes (Hospitalization, Other)
  Sender: FDA-Public Use
  Company Number: US-TARO-2012P1061193

PATIENT
  Age: 32 Year
  Sex: Male

DRUGS (2)
  1. CARBAMAZEPINE EXTENDED RELEASE TABLETS USP 200MG [Suspect]
     Indication: CONVULSION
     Route: 048
     Dates: start: 201206, end: 2012
  2. ALPRAZOLAM [Concomitant]
     Dates: end: 201208

REACTIONS (1)
  - Stevens-Johnson syndrome [Not Recovered/Not Resolved]
